FAERS Safety Report 4835169-8 (Version None)
Quarter: 2005Q4

REPORT INFORMATION
  Report Type: 
  Country: None (occurrence: None)
  Receive Date: 20051122
  Receipt Date: 20050928
  Transmission Date: 20060501
  Serious: Yes (Hospitalization)
  Sender: FDA-Public Use
  Company Number: US-MERCK-0509USA04803

PATIENT
  Age: 75 Year
  Sex: Male
  Weight: 84 kg

DRUGS (10)
  1. VIOXX [Suspect]
     Indication: GOUT
     Route: 048
     Dates: start: 20020121, end: 20040401
  2. RANITIDINE HYDROCHLORIDE [Concomitant]
     Route: 065
  3. GLYBURIDE [Concomitant]
     Route: 065
  4. HYDROCODONE BITARTRATE [Concomitant]
     Route: 065
  5. HYDROCHLOROTHIAZIDE [Concomitant]
     Route: 065
  6. LESCOL [Concomitant]
     Route: 065
  7. AMITRIPTYLINE HYDROCHLORIDE [Concomitant]
     Route: 065
  8. WARFARIN [Concomitant]
     Route: 065
  9. TOPROL-XL [Concomitant]
     Route: 065
  10. LUMIGAN [Concomitant]
     Route: 065

REACTIONS (1)
  - CEREBROVASCULAR ACCIDENT [None]
